FAERS Safety Report 19206909 (Version 4)
Quarter: 2022Q4

REPORT INFORMATION
  Report Type: Report from Study
  Country: US (occurrence: US)
  Receive Date: 20210430
  Receipt Date: 20221012
  Transmission Date: 20230113
  Serious: Yes (Hospitalization)
  Sender: FDA-Public Use
  Company Number: US-REGENERON PHARMACEUTICALS, INC.-2021-45241

PATIENT
  Age: 15 Year
  Sex: Male

DRUGS (52)
  1. CEMIPLIMAB [Suspect]
     Active Substance: CEMIPLIMAB
     Indication: Malignant glioma
     Dosage: 3 MG/KG, DAY 1 AND 15 OF 28-DAY CYCLE
     Route: 042
     Dates: start: 20201217, end: 20210325
  2. RADIATION THERAPY [Concomitant]
     Active Substance: RADIATION THERAPY
     Indication: Malignant glioma
     Dosage: RIGHT PARIETAL 3 CGY 10 FRACTIONS 10 DAYS (ACTUAL DOSE ADMINISTERED 3500, TOTAL PLANNED DOSE 35 CGY)
     Dates: start: 20201217, end: 20201231
  3. ACETAMINOPHEN [Concomitant]
     Active Substance: ACETAMINOPHEN
     Indication: Headache
     Dosage: 650 MG, Q6H
     Route: 048
     Dates: start: 20201217
  4. ACETAMINOPHEN [Concomitant]
     Active Substance: ACETAMINOPHEN
     Indication: Abdominal pain
     Dosage: 500 MG, Q6H
     Route: 048
     Dates: start: 20210328, end: 20210331
  5. MIRALAX [Concomitant]
     Active Substance: POLYETHYLENE GLYCOL 3350
     Indication: Constipation
     Dosage: 34 G, BID
     Route: 048
     Dates: start: 20210127, end: 20210325
  6. MIRALAX [Concomitant]
     Active Substance: POLYETHYLENE GLYCOL 3350
     Indication: Colonoscopy
     Dosage: 17 G, Q1H
     Route: 048
     Dates: start: 20210327, end: 20210329
  7. SENNOSIDES A AND B [Concomitant]
     Active Substance: SENNOSIDES A AND B
     Indication: Constipation
     Dosage: 17.2 G, NIGHTLY
     Route: 048
     Dates: start: 20210127, end: 20210312
  8. SENNOSIDES A AND B [Concomitant]
     Active Substance: SENNOSIDES A AND B
     Dosage: 17.2 G, NIGHTLY
     Route: 048
     Dates: start: 20210127, end: 20210312
  9. BISACODYL [Concomitant]
     Active Substance: BISACODYL
     Indication: Constipation
     Dosage: 10 MG, QD
     Route: 054
     Dates: start: 20210124
  10. BISACODYL [Concomitant]
     Active Substance: BISACODYL
     Dosage: 10 MG, QD
     Route: 054
     Dates: start: 20210124
  11. COLACE [Concomitant]
     Active Substance: DOCUSATE SODIUM
     Indication: Prophylaxis
     Dosage: 50 MG, QD
     Route: 048
     Dates: start: 20210122, end: 20210325
  12. COLACE [Concomitant]
     Active Substance: DOCUSATE SODIUM
     Indication: Constipation
     Dosage: 50 MG, QD
     Route: 048
     Dates: start: 20210122, end: 20210325
  13. FAMOTIDINE [Concomitant]
     Active Substance: FAMOTIDINE
     Indication: Gastrooesophageal reflux prophylaxis
     Dosage: 20 MG, BID
     Route: 048
     Dates: start: 20210121, end: 20210325
  14. FAMOTIDINE [Concomitant]
     Active Substance: FAMOTIDINE
     Dosage: 20 MG, BID
     Route: 048
     Dates: start: 20210121, end: 20210325
  15. METHYLPREDNISOLONE [Concomitant]
     Active Substance: METHYLPREDNISOLONE
     Indication: Colitis
     Dosage: 49.6 MG, BID
     Route: 042
     Dates: start: 20210330, end: 20210331
  16. METHYLPREDNISOLONE [Concomitant]
     Active Substance: METHYLPREDNISOLONE
     Dosage: 49.6 MG, BID
     Route: 042
     Dates: start: 20210330, end: 20210331
  17. ZOSYN [Concomitant]
     Active Substance: PIPERACILLIN SODIUM\TAZOBACTAM SODIUM
     Indication: Abdominal pain
     Dosage: 4000 MG, Q6H
     Route: 042
     Dates: start: 20210330, end: 20210401
  18. MORPHINE [Concomitant]
     Active Substance: MORPHINE
     Indication: Colitis
     Dosage: 2 MG, Q3H
     Route: 042
     Dates: start: 20210327, end: 20210331
  19. MORPHINE [Concomitant]
     Active Substance: MORPHINE
     Indication: Abdominal pain
     Dosage: 6 MG, Q3
     Route: 048
     Dates: start: 20210330, end: 20210401
  20. MORPHINE [Concomitant]
     Active Substance: MORPHINE
     Dosage: 12 MG, Q3
     Route: 048
     Dates: start: 20210401, end: 20210401
  21. MORPHINE [Concomitant]
     Active Substance: MORPHINE
     Dosage: 12 MG, Q4H
     Route: 048
     Dates: start: 20210402, end: 20210403
  22. MORPHINE [Concomitant]
     Active Substance: MORPHINE
     Dosage: 15MG, Q4H
     Route: 048
     Dates: start: 20210403, end: 20210404
  23. MORPHINE [Concomitant]
     Active Substance: MORPHINE
     Dosage: 15MG, Q4H
     Route: 048
     Dates: start: 20210405, end: 20210406
  24. MORPHINE [Concomitant]
     Active Substance: MORPHINE
     Dosage: 4MG, Q3H
     Route: 042
     Dates: start: 20210403, end: 20210411
  25. SIMETHICONE (DIMETHICONE) [Concomitant]
     Active Substance: DIMETHICONE
     Indication: Flatulence
     Dosage: 80 MG, Q6H
     Route: 048
     Dates: start: 20210330
  26. FENTANYL [Concomitant]
     Active Substance: FENTANYL
     Indication: Colonoscopy
     Dosage: 25 MICROGRAM, AS NECESSARY
     Route: 042
     Dates: start: 20210329, end: 20210329
  27. DEXMEDETOMIDINE [Concomitant]
     Active Substance: DEXMEDETOMIDINE
     Indication: Colonoscopy
     Dosage: 4 MICROGRAM, AS NECESSARY
     Route: 042
     Dates: start: 20210329, end: 20210329
  28. ONDANSETRON [Concomitant]
     Active Substance: ONDANSETRON
     Indication: Colonoscopy
     Dosage: 4 MG, AS NECESSARY
     Route: 042
     Dates: start: 20210329, end: 20210329
  29. PROPOFOL [Concomitant]
     Active Substance: PROPOFOL
     Indication: Colonoscopy
     Dosage: 50-150MG, AS NECESSARY
     Route: 042
     Dates: start: 20210329, end: 20210329
  30. ROCURONIUM [Concomitant]
     Active Substance: ROCURONIUM BROMIDE
     Indication: Colonoscopy
     Dosage: 50 MG, AS NECESSARY
     Route: 042
     Dates: start: 20210329, end: 20210329
  31. SUGAMMADEX [Concomitant]
     Active Substance: SUGAMMADEX
     Indication: Colonoscopy
     Dosage: 150 MG, AS NECESSARY
     Route: 042
     Dates: start: 20210329, end: 20210329
  32. DICYCLOMINE                        /00068601/ [Concomitant]
     Indication: Abdominal pain
     Dosage: 20 MG, TID
     Route: 048
     Dates: start: 20210328, end: 20210401
  33. DICYCLOMINE                        /00068601/ [Concomitant]
     Dosage: 20 MG, TID
     Route: 048
     Dates: start: 20210328, end: 20210401
  34. PANTOPRAZOLE [Concomitant]
     Active Substance: PANTOPRAZOLE
     Indication: Rectal haemorrhage
     Dosage: 40 MG, QOD
     Route: 042
     Dates: start: 20210327, end: 20210402
  35. PANTOPRAZOLE [Concomitant]
     Active Substance: PANTOPRAZOLE
     Indication: Prophylaxis
     Dosage: 40 MG, BID
     Route: 048
     Dates: start: 20210403
  36. PANTOPRAZOLE [Concomitant]
     Active Substance: PANTOPRAZOLE
     Dosage: 40 MG, QOD
     Route: 048
     Dates: start: 20210325
  37. PANTOPRAZOLE [Concomitant]
     Active Substance: PANTOPRAZOLE
     Dosage: 40 MG, QOD
     Route: 042
     Dates: start: 20210327, end: 20210402
  38. PANTOPRAZOLE [Concomitant]
     Active Substance: PANTOPRAZOLE
     Dosage: 40 MG, BID
     Route: 048
     Dates: start: 20210403
  39. PANTOPRAZOLE [Concomitant]
     Active Substance: PANTOPRAZOLE
     Dosage: 40 MG, QOD
     Route: 048
     Dates: start: 20210325
  40. OXYCODONE [Concomitant]
     Active Substance: OXYCODONE
     Indication: Abdominal pain
     Dosage: 5 MG, Q4H
     Route: 048
     Dates: start: 20210325, end: 20210418
  41. DEXAMETHASONE [Concomitant]
     Active Substance: DEXAMETHASONE
     Indication: Nervous system disorder
     Dosage: 2 MG, BID
     Route: 048
     Dates: start: 20210302, end: 20210327
  42. DEXAMETHASONE [Concomitant]
     Active Substance: DEXAMETHASONE
     Indication: Colitis
     Dosage: 12 MG, ONCE
     Route: 042
     Dates: start: 20210331, end: 20210331
  43. DEXAMETHASONE [Concomitant]
     Active Substance: DEXAMETHASONE
     Indication: Fall
     Dosage: 9.2 MG, BID
     Route: 042
     Dates: start: 20210401, end: 20210403
  44. DEXAMETHASONE [Concomitant]
     Active Substance: DEXAMETHASONE
     Dosage: 9 MG, BID
     Route: 048
     Dates: start: 20210403, end: 20210405
  45. DEXAMETHASONE [Concomitant]
     Active Substance: DEXAMETHASONE
     Dosage: 6 MG, BID
     Route: 048
     Dates: start: 20210406, end: 20210412
  46. DEXAMETHASONE [Concomitant]
     Active Substance: DEXAMETHASONE
     Dosage: 9.2 MG, BID
     Route: 042
     Dates: start: 20210401, end: 20210403
  47. MESALAMINE [Concomitant]
     Active Substance: MESALAMINE
     Indication: Colitis
     Dosage: 4 G, QD
     Route: 054
     Dates: start: 20210401
  48. HYOSCYAMINE [Concomitant]
     Active Substance: HYOSCYAMINE
     Indication: Abdominal pain
     Dosage: 0.125 MG, Q4H
     Route: 048
     Dates: start: 20210401
  49. HYOSCYAMINE [Concomitant]
     Active Substance: HYOSCYAMINE
     Dosage: 0.125 MG, Q4H
     Route: 048
     Dates: start: 20210401
  50. DIPHENHYDRAMINE [Concomitant]
     Active Substance: DIPHENHYDRAMINE
     Indication: Prophylaxis
     Dosage: 25 MG, Q4H
     Route: 048
     Dates: start: 20210404
  51. DIPHENHYDRAMINE [Concomitant]
     Active Substance: DIPHENHYDRAMINE
     Indication: Prophylaxis
  52. AMLODIPINE [Concomitant]
     Active Substance: AMLODIPINE BESYLATE
     Indication: Hypertension
     Dosage: 5 MG, QD
     Route: 048
     Dates: start: 20210404, end: 20210410

REACTIONS (5)
  - Arthralgia [Recovered/Resolved with Sequelae]
  - Myalgia [Recovered/Resolved with Sequelae]
  - Colitis [Not Recovered/Not Resolved]
  - Aspartate aminotransferase increased [Not Recovered/Not Resolved]
  - Alanine aminotransferase increased [Not Recovered/Not Resolved]

NARRATIVE: CASE EVENT DATE: 20210408
